FAERS Safety Report 4349473-3 (Version None)
Quarter: 2004Q2

REPORT INFORMATION
  Report Type: 
  Country: None (occurrence: None)
  Receive Date: 20040426
  Receipt Date: 20040416
  Transmission Date: 20050107
  Serious: Yes (Hospitalization)
  Sender: FDA-Public Use
  Company Number: 04P-062-0258094-00

PATIENT
  Age: 82 Year
  Sex: Female
  Weight: 65 kg

DRUGS (2)
  1. ISOPTIN [Suspect]
     Indication: SUICIDE ATTEMPT
     Dosage: 400 MG ONCE PER ORAL
     Route: 048
     Dates: start: 20040415, end: 20040415
  2. ZOLPIDEM BETA [Suspect]
     Indication: SUICIDE ATTEMPT
     Dosage: 200 MG ONCE PER ORAL
     Route: 048
     Dates: start: 20040415, end: 20040415

REACTIONS (2)
  - OVERDOSE [None]
  - SUICIDE ATTEMPT [None]
